FAERS Safety Report 10186434 (Version 1)
Quarter: 2014Q2

REPORT INFORMATION
  Report Type: Spontaneous
  Country: US (occurrence: US)
  Receive Date: 20140521
  Receipt Date: 20140521
  Transmission Date: 20141212
  Serious: No
  Sender: FDA-Public Use
  Company Number: US-ASTRAZENECA-2014SE00791

PATIENT
  Age: 66 Year
  Sex: Male
  Weight: 97.5 kg

DRUGS (7)
  1. PULMICORT RESPULES [Suspect]
     Indication: CHRONIC OBSTRUCTIVE PULMONARY DISEASE
     Dosage: 1MG IN 2 ML BID
     Route: 055
     Dates: start: 20131127
  2. PULMICORT RESPULES [Suspect]
     Indication: EMPHYSEMA
     Dosage: 1MG IN 2 ML BID
     Route: 055
     Dates: start: 20131127
  3. SYMBICORT  PMDI [Suspect]
     Indication: CHRONIC OBSTRUCTIVE PULMONARY DISEASE
     Dosage: 1 PUFF, BID
     Route: 055
  4. ALBUTEROL [Concomitant]
     Indication: RESPIRATORY THERAPY
     Dosage: PRN
  5. SPIRVIA [Concomitant]
  6. IPRATROPIUM BROMIDE/ALBUTEROL SULFATE [Concomitant]
     Dosage: 0.5MG/3MG PER 3ML NR
  7. CARTIA XL [Concomitant]

REACTIONS (11)
  - Skin exfoliation [Unknown]
  - Obesity [Unknown]
  - Impaired work ability [Unknown]
  - Dysphonia [Unknown]
  - Pruritus [Unknown]
  - Rash generalised [Unknown]
  - Throat irritation [Unknown]
  - Intentional product misuse [Unknown]
  - Drug ineffective [Unknown]
  - Intentional product misuse [Unknown]
  - Off label use [Unknown]
